FAERS Safety Report 10121092 (Version 2)
Quarter: 2014Q2

REPORT INFORMATION
  Report Type: Spontaneous
  Country: US (occurrence: US)
  Receive Date: 20140425
  Receipt Date: 20140616
  Transmission Date: 20141212
  Serious: No
  Sender: FDA-Public Use
  Company Number: US-TEVA-475978USA

PATIENT
  Age: 5 Year
  Sex: Male
  Weight: 29.96 kg

DRUGS (3)
  1. PROAIR HFA [Suspect]
     Indication: SEASONAL ALLERGY
     Route: 055
  2. ZYRTEC [Concomitant]
     Indication: SEASONAL ALLERGY
  3. IBUPROFEN [Concomitant]
     Indication: PYREXIA

REACTIONS (8)
  - Pyrexia [Not Recovered/Not Resolved]
  - Vomiting [Not Recovered/Not Resolved]
  - Palpitations [Not Recovered/Not Resolved]
  - Cough [Not Recovered/Not Resolved]
  - Nausea [Not Recovered/Not Resolved]
  - Abdominal pain upper [Not Recovered/Not Resolved]
  - Hyperhidrosis [Not Recovered/Not Resolved]
  - Product quality issue [Recovered/Resolved]
